FAERS Safety Report 5772643-4 (Version None)
Quarter: 2008Q2

REPORT INFORMATION
  Report Type: 
  Country: None (occurrence: None)
  Receive Date: 20080613
  Receipt Date: 20080612
  Transmission Date: 20081010
  Serious: Yes (Other)
  Sender: FDA-Public Use
  Company Number: BR-BOEHRINGER INGELHEIM GMBH, GERMANY-2008-BP-09153BR

PATIENT
  Age: 62 Year
  Sex: Male

DRUGS (2)
  1. MICARDIS [Suspect]
     Indication: HYPERTENSION
     Route: 048
     Dates: start: 20080401
  2. GLUCOVANCE [Concomitant]
     Indication: DIABETES MELLITUS

REACTIONS (1)
  - THERAPEUTIC RESPONSE DECREASED [None]
